FAERS Safety Report 14433235 (Version 1)
Quarter: 2018Q1

REPORT INFORMATION
  Report Type: Spontaneous
  Country: US (occurrence: US)
  Receive Date: 20180124
  Receipt Date: 20180124
  Transmission Date: 20180509
  Serious: Yes (Other)
  Sender: FDA-Public Use
  Company Number: US-PIRAMAL CRITICAL CARE LIMITED-T201300261

PATIENT

DRUGS (1)
  1. GABLOFEN [Suspect]
     Active Substance: BACLOFEN
     Indication: MUSCLE SPASTICITY
     Dosage: 565.7 ?G, QD
     Route: 037

REACTIONS (4)
  - Device issue [Unknown]
  - Condition aggravated [Unknown]
  - Drug effect decreased [Unknown]
  - Pruritus [Unknown]
